FAERS Safety Report 17458998 (Version 1)
Quarter: 2020Q1

REPORT INFORMATION
  Report Type: Spontaneous
  Country: US (occurrence: US)
  Receive Date: 20200225
  Receipt Date: 20200225
  Transmission Date: 20200409
  Serious: No
  Sender: FDA-Public Use
  Company Number: US-IGSA-SR10009450

PATIENT
  Age: 70 Year
  Sex: Male
  Weight: 122 kg

DRUGS (10)
  1. SERTRALINE                         /01011402/ [Concomitant]
     Active Substance: SERTRALINE HYDROCHLORIDE
  2. PROLASTIN-C LIQUID [Suspect]
     Active Substance: .ALPHA.1-PROTEINASE INHIBITOR HUMAN
     Indication: ALPHA-1 ANTI-TRYPSIN DEFICIENCY
     Dosage: 7320 MG, Q.WK.
     Route: 042
     Dates: start: 20191031
  3. TOPIRAMATE. [Concomitant]
     Active Substance: TOPIRAMATE
  4. PREDNISONE                         /00044702/ [Concomitant]
     Active Substance: PREDNISONE
  5. FINASTERIDE. [Concomitant]
     Active Substance: FINASTERIDE
  6. LISINOPRIL                         /00894002/ [Concomitant]
     Active Substance: LISINOPRIL
  7. BUDESONIDE. [Concomitant]
     Active Substance: BUDESONIDE
  8. ALBUTEROL SULFATE. [Concomitant]
     Active Substance: ALBUTEROL SULFATE
  9. TRAMADOL                           /00599202/ [Concomitant]
     Active Substance: TRAMADOL
  10. BROVANA [Concomitant]
     Active Substance: ARFORMOTEROL TARTRATE

REACTIONS (3)
  - Blood glucose increased [Not Recovered/Not Resolved]
  - Neck pain [Not Recovered/Not Resolved]
  - Dizziness [Recovering/Resolving]

NARRATIVE: CASE EVENT DATE: 20191031
